FAERS Safety Report 15653838 (Version 1)
Quarter: 2018Q4

REPORT INFORMATION
  Report Type: Spontaneous
  Country: US (occurrence: US)
  Receive Date: 20181123
  Receipt Date: 20181123
  Transmission Date: 20190205
  Serious: Yes (Life-Threatening, Hospitalization, Disabling, Other)
  Sender: FDA-Public Use
  Company Number: None

PATIENT
  Age: 50 Year
  Sex: Female
  Weight: 60.75 kg

DRUGS (1)
  1. LIDOCAINE (IV BAG) I^M SURE IT^S LONG GONE. [Suspect]
     Active Substance: LIDOCAINE
     Indication: COMPLEX REGIONAL PAIN SYNDROME
     Dosage: ?          QUANTITY:1 INFUSION;?
     Route: 042
     Dates: start: 20170511, end: 20180816

REACTIONS (7)
  - Diplopia [None]
  - Transient ischaemic attack [None]
  - Brain injury [None]
  - Cerebrovascular accident [None]
  - Drug effect decreased [None]
  - Memory impairment [None]
  - Idiosyncratic drug reaction [None]

NARRATIVE: CASE EVENT DATE: 20180816
